FAERS Safety Report 24166987 (Version 2)
Quarter: 2024Q3

REPORT INFORMATION
  Report Type: Report from Study
  Country: FR (occurrence: FR)
  Receive Date: 20240802
  Receipt Date: 20240819
  Transmission Date: 20241017
  Serious: Yes (Other)
  Sender: AEGERION
  Company Number: FR-AMRYT PHARMACEUTICALS DAC-AEGR006983

PATIENT

DRUGS (14)
  1. LOMITAPIDE MESYLATE [Suspect]
     Active Substance: LOMITAPIDE MESYLATE
     Indication: Type IIa hyperlipidaemia
     Dosage: 5 MILLIGRAM, QD
     Dates: start: 20210830, end: 20211108
  2. LOMITAPIDE MESYLATE [Suspect]
     Active Substance: LOMITAPIDE MESYLATE
     Dosage: 10 MILLIGRAM, QD
     Dates: start: 20211109, end: 20220102
  3. LOMITAPIDE MESYLATE [Suspect]
     Active Substance: LOMITAPIDE MESYLATE
     Dosage: 15 MILLIGRAM, QD
     Dates: start: 20220103, end: 20220512
  4. LOMITAPIDE MESYLATE [Suspect]
     Active Substance: LOMITAPIDE MESYLATE
     Dosage: 20 MILLIGRAM, QD
     Dates: start: 20220513, end: 20220928
  5. LOMITAPIDE MESYLATE [Suspect]
     Active Substance: LOMITAPIDE MESYLATE
     Dosage: 10 MILLIGRAM, QD
     Dates: start: 20220929
  6. LOMITAPIDE MESYLATE [Suspect]
     Active Substance: LOMITAPIDE MESYLATE
     Dosage: 20 MILLIGRAM, QD
     Route: 048
     Dates: start: 20220603, end: 20220916
  7. LOMITAPIDE MESYLATE [Suspect]
     Active Substance: LOMITAPIDE MESYLATE
     Dosage: 10 MILLIGRAM
     Route: 048
     Dates: start: 20221125
  8. ASPIRIN [Concomitant]
     Active Substance: ASPIRIN
     Indication: Coronary artery stenosis
     Dosage: 100 MILLIGRAM, QD
     Route: 048
     Dates: start: 20210521
  9. CHOLECALCIFEROL [Concomitant]
     Active Substance: CHOLECALCIFEROL
     Indication: Vitamin D deficiency
     Dosage: 100000 ARBITRARY UNITS EVERY 2 MONTHS
     Route: 048
     Dates: start: 20190426
  10. OMEGA-3-ACID ETHYL ESTERS [Concomitant]
     Active Substance: OMEGA-3-ACID ETHYL ESTERS
     Indication: Prophylaxis
     Dosage: 1000 MILLIGRAM, QD
     Route: 048
     Dates: start: 20230120
  11. EZETIMIBE [Concomitant]
     Active Substance: EZETIMIBE
     Indication: Blood cholesterol increased
     Dosage: 10 MILLIGRAM, QD
     Route: 048
     Dates: start: 20050509
  12. FERROUS SULFATE [Concomitant]
     Active Substance: FERROUS SULFATE
     Indication: Iron deficiency
     Dosage: 80 MILLIGRAM, QD
     Route: 048
     Dates: start: 1999
  13. ROSUVASTATIN [Concomitant]
     Active Substance: ROSUVASTATIN\ROSUVASTATIN CALCIUM
     Indication: Blood cholesterol increased
     Dosage: 20 MILLIGRAM, QD
     Route: 048
     Dates: start: 20211006
  14. VITAMIN E [Concomitant]
     Active Substance: .ALPHA.-TOCOPHEROL
     Indication: Prophylaxis
     Dosage: 500 MILLIGRAM, QD
     Route: 048
     Dates: start: 20220422

REACTIONS (1)
  - Hepatic enzyme increased [Recovered/Resolved]

NARRATIVE: CASE EVENT DATE: 20220916
